FAERS Safety Report 9188590 (Version 1)
Quarter: 2013Q1

REPORT INFORMATION
  Report Type: Spontaneous
  Country: IT (occurrence: IT)
  Receive Date: 20130325
  Receipt Date: 20130325
  Transmission Date: 20140127
  Serious: Yes (Other)
  Sender: FDA-Public Use
  Company Number: IT-MYLANLABS-2013S1005807

PATIENT
  Age: 79 Year
  Sex: Male

DRUGS (3)
  1. IRINOTECAN [Suspect]
     Indication: COLON CANCER METASTATIC
     Dosage: CYCLIC
     Route: 042
     Dates: start: 20121014, end: 20121114
  2. FLUOROURACIL [Suspect]
     Indication: COLON CANCER METASTATIC
     Dosage: CYCLIC
     Route: 042
     Dates: start: 20121014, end: 20121114
  3. ERBITUX [Concomitant]
     Indication: COLON CANCER METASTATIC
     Dates: start: 20121014, end: 20130124

REACTIONS (2)
  - Hepatic failure [Recovered/Resolved]
  - Hyperbilirubinaemia [Recovered/Resolved]
